FAERS Safety Report 6223305-0 (Version None)
Quarter: 2009Q2

REPORT INFORMATION
  Report Type: 
  Country: None (occurrence: None)
  Receive Date: 20090611
  Receipt Date: 20090601
  Transmission Date: 20091009
  Serious: Yes (Hospitalization)
  Sender: FDA-Public Use
  Company Number: ES-TYCO HEALTHCARE/MALLINCKRODT-T200901121

PATIENT

DRUGS (1)
  1. LIQUID BAROSPERSE [Suspect]
     Indication: X-RAY WITH CONTRAST UPPER GASTROINTESTINAL TRACT

REACTIONS (1)
  - APPENDICITIS [None]
